FAERS Safety Report 24901407 (Version 2)
Quarter: 2025Q2

REPORT INFORMATION
  Report Type: Spontaneous
  Country: US (occurrence: None)
  Receive Date: 20250127
  Receipt Date: 20250414
  Transmission Date: 20250716
  Serious: Yes (Death)
  Sender: DANCO
  Company Number: None

PATIENT
  Age: 35 Year
  Sex: Female

DRUGS (2)
  1. MIFEPRISTONE [Suspect]
     Active Substance: MIFEPRISTONE
     Indication: Abortion induced
     Route: 048
     Dates: start: 20241218
  2. MISOPROSTOL [Suspect]
     Active Substance: MISOPROSTOL
     Route: 002
     Dates: start: 20241219

REACTIONS (1)
  - Death [None]

NARRATIVE: CASE EVENT DATE: 20250108
